FAERS Safety Report 5506876-9 (Version None)
Quarter: 2007Q4

REPORT INFORMATION
  Report Type: 
  Country: None (occurrence: None)
  Receive Date: 20071105
  Receipt Date: 20071024
  Transmission Date: 20080405
  Serious: Yes (Death, Other)
  Sender: FDA-Public Use
  Company Number: JP-PFIZER INC-2007090469

PATIENT
  Age: 56 Year
  Sex: Female

DRUGS (6)
  1. CYTOTEC [Suspect]
     Indication: PROPHYLAXIS AGAINST GASTROINTESTINAL ULCER
     Route: 048
     Dates: start: 20071002, end: 20071009
  2. IBUPROFEN [Suspect]
     Dosage: FREQ:TRICE DAILY
     Route: 048
     Dates: start: 20071002, end: 20071009
  3. PREDONINE [Concomitant]
     Route: 048
  4. ALLEGRA [Concomitant]
     Route: 048
  5. POLARAMINE [Concomitant]
     Route: 048
  6. MUCOSTA [Concomitant]
     Route: 048

REACTIONS (3)
  - EOSINOPHIL COUNT INCREASED [None]
  - HEPATIC ENZYME INCREASED [None]
  - HEPATITIS FULMINANT [None]
